FAERS Safety Report 15948128 (Version 1)
Quarter: 2019Q1

REPORT INFORMATION
  Report Type: Spontaneous
  Country: FR (occurrence: FR)
  Receive Date: 20190212
  Receipt Date: 20190212
  Transmission Date: 20190417
  Serious: Yes (Other)
  Sender: FDA-Public Use
  Company Number: FR-TEVA-2019-FR-1009457

PATIENT
  Age: 42 Year
  Sex: Female

DRUGS (5)
  1. LEPTICUR 10 MG, COMPRIM? [Suspect]
     Active Substance: TROPATEPINE HYDROCHLORIDE
     Indication: SCHIZOPHRENIA
     Dosage: 2 DOSAGE FORMS DAILY;
     Route: 048
     Dates: end: 20181213
  2. ZOLPIDEM [Suspect]
     Active Substance: ZOLPIDEM\ZOLPIDEM TARTRATE
     Indication: SLEEP DISORDER
     Dosage: 1 DOSAGE FORMS DAILY;
     Route: 048
     Dates: end: 20181213
  3. SPECIAFOLDINE 5 MG, COMPRIM? [Suspect]
     Active Substance: FOLIC ACID
     Indication: ANAEMIA FOLATE DEFICIENCY
     Dosage: 1 DOSAGE FORMS DAILY;
     Route: 048
     Dates: start: 20181211, end: 20181217
  4. TRANXENE [Suspect]
     Active Substance: CLORAZEPATE DIPOTASSIUM
     Indication: SCHIZOPHRENIA
     Dosage: 2 DOSAGE FORMS DAILY;
     Route: 048
     Dates: end: 20181213
  5. URBANYL 5 MG, G?LULE [Suspect]
     Active Substance: CLOBAZAM
     Indication: EPILEPSY
     Dosage: 3 DOSAGE FORMS DAILY;
     Route: 048
     Dates: end: 20181213

REACTIONS (4)
  - Hyperthermia [Recovered/Resolved]
  - Impetigo [Recovered/Resolved]
  - Rash maculo-papular [Recovered/Resolved]
  - Eosinophilia [Recovered/Resolved]

NARRATIVE: CASE EVENT DATE: 201812
